FAERS Safety Report 21932142 (Version 4)
Quarter: 2024Q2

REPORT INFORMATION
  Report Type: Spontaneous
  Country: US (occurrence: US)
  Receive Date: 20230131
  Receipt Date: 20240524
  Transmission Date: 20240716
  Serious: Yes (Hospitalization, Other)
  Sender: FDA-Public Use
  Company Number: US-PFIZER INC-PV202300019609

PATIENT
  Age: 75 Year
  Sex: Female

DRUGS (1)
  1. IBRANCE [Suspect]
     Active Substance: PALBOCICLIB
     Dosage: 125 MG
     Dates: start: 20200213, end: 20230106

REACTIONS (3)
  - Hip arthroplasty [Unknown]
  - Spinal operation [Unknown]
  - Dry skin [Unknown]

NARRATIVE: CASE EVENT DATE: 20230111
